FAERS Safety Report 6897130-1 (Version None)
Quarter: 2010Q3

REPORT INFORMATION
  Report Type: 
  Country: None (occurrence: None)
  Receive Date: 20100802
  Receipt Date: 20100729
  Transmission Date: 20110219
  Serious: Yes (Death, Congenital Anomaly)
  Sender: FDA-Public Use
  Company Number: GB-GILEAD-2010-0028858

PATIENT
  Age: 16 Day
  Sex: Female
  Weight: 3.41 kg

DRUGS (5)
  1. TRUVADA [Suspect]
     Indication: HIV INFECTION
     Route: 064
  2. DARUNAVIR [Suspect]
     Route: 064
     Dates: start: 20090310
  3. ISENTRESS [Suspect]
     Indication: HIV INFECTION
     Route: 064
     Dates: start: 20090310
  4. RITONAVIR [Suspect]
     Dates: start: 20090310
  5. ZIDOVUDINE [Suspect]
     Dates: start: 20090318

REACTIONS (9)
  - AORTIC VALVE STENOSIS [None]
  - APNOEA [None]
  - CARDIAC MURMUR [None]
  - CONGENITAL HEART VALVE DISORDER [None]
  - DRUG EXPOSURE DURING PREGNANCY [None]
  - MATERNAL DRUGS AFFECTING FOETUS [None]
  - PULMONARY VALVE STENOSIS [None]
  - SUDDEN INFANT DEATH SYNDROME [None]
  - VENTRICULAR HYPERTROPHY [None]
